FAERS Safety Report 5323954-8 (Version None)
Quarter: 2007Q2

REPORT INFORMATION
  Report Type: 
  Country: None (occurrence: None)
  Receive Date: 20070220
  Receipt Date: 20070108
  Transmission Date: 20071010
  Serious: No
  Sender: FDA-Public Use
  Company Number: WAES 0701USA00939

PATIENT
  Age: 60 Year
  Sex: Female

DRUGS (7)
  1. JANUVIA [Suspect]
     Indication: DIABETES MELLITUS
     Dosage: 100 MG;DAILY;PO
     Route: 048
     Dates: start: 20061101
  2. PLAVIX [Concomitant]
  3. PROCARDIA [Concomitant]
  4. TOPROL-XL [Concomitant]
  5. ASPIRIN [Concomitant]
  6. LISINOPRIL [Concomitant]
  7. METFORMIN HCL [Concomitant]

REACTIONS (2)
  - CANDIDIASIS [None]
  - TONGUE DISCOLOURATION [None]
